APPROVED DRUG PRODUCT: ESTROGEL
Active Ingredient: ESTRADIOL
Strength: 0.06% (1.25GM/ACTIVATION)
Dosage Form/Route: GEL, METERED;TRANSDERMAL
Application: N021166 | Product #002 | TE Code: AB
Applicant: ASCEND THERAPEUTICS US LLC
Approved: Feb 9, 2004 | RLD: Yes | RS: Yes | Type: RX